FAERS Safety Report 21189972 (Version 1)
Quarter: 2022Q3

REPORT INFORMATION
  Report Type: Spontaneous
  Country: DE (occurrence: DE)
  Receive Date: 20220809
  Receipt Date: 20220809
  Transmission Date: 20221027
  Serious: Yes (Other)
  Sender: FDA-Public Use
  Company Number: DE-GSKCCFEMEA-Case-01548546_AE-60898

PATIENT

DRUGS (8)
  1. NUCALA [Suspect]
     Active Substance: MEPOLIZUMAB
     Indication: Eosinophilic granulomatosis with polyangiitis
     Dosage: 100 MG, Z EVERY 4 WEEKS
  2. NUCALA [Suspect]
     Active Substance: MEPOLIZUMAB
     Indication: Asthma
  3. DUPIXENT [Suspect]
     Active Substance: DUPILUMAB
     Indication: Asthma
     Dosage: UNK
  4. ACTONEL [Concomitant]
     Active Substance: RISEDRONATE SODIUM
     Indication: Product used for unknown indication
     Dosage: UNK, WE
  5. PHOSTAT [Concomitant]
     Indication: Product used for unknown indication
     Dosage: UNK
  6. PROMETHAZINE TEOCLATE [Concomitant]
     Active Substance: PROMETHAZINE TEOCLATE
     Indication: Product used for unknown indication
     Dosage: UNK
  7. PREDNISOLONE [Concomitant]
     Active Substance: PREDNISOLONE
     Indication: Product used for unknown indication
     Dosage: UNK
  8. PREGABALIN [Concomitant]
     Active Substance: PREGABALIN
     Indication: Product used for unknown indication
     Dosage: UNK

REACTIONS (10)
  - Eosinophilic granulomatosis with polyangiitis [Unknown]
  - Paranasal sinus inflammation [Unknown]
  - Sinusitis [Unknown]
  - Disease recurrence [Unknown]
  - Rheumatic disorder [Unknown]
  - Condition aggravated [Unknown]
  - Coronavirus infection [Unknown]
  - Product dose omission issue [Unknown]
  - Incorrect dosage administered [Unknown]
  - Drug ineffective [Unknown]
